FAERS Safety Report 13043369 (Version 1)
Quarter: 2016Q4

REPORT INFORMATION
  Report Type: Spontaneous
  Country: US (occurrence: US)
  Receive Date: 20161220
  Receipt Date: 20161220
  Transmission Date: 20170207
  Serious: No
  Sender: FDA-Public Use
  Company Number: US-BAUSCH-BL-2016-008058

PATIENT
  Age: 16 Year
  Sex: Female

DRUGS (1)
  1. ZIANA [Suspect]
     Active Substance: CLINDAMYCIN PHOSPHATE\TRETINOIN
     Indication: ACNE
     Dosage: APPLIED ^ON AND OFF^ ON HER FACE
     Route: 061

REACTIONS (1)
  - Treatment noncompliance [Unknown]
